FAERS Safety Report 15052942 (Version 2)
Quarter: 2018Q2

REPORT INFORMATION
  Report Type: Spontaneous
  Country: FR (occurrence: FR)
  Receive Date: 20180622
  Receipt Date: 20180628
  Transmission Date: 20180711
  Serious: Yes (Hospitalization)
  Sender: FDA-Public Use
  Company Number: FR-INDIVIOR LIMITED-INDV-111655-2018

PATIENT
  Age: 49 Year
  Sex: Male

DRUGS (3)
  1. SERESTA [Suspect]
     Active Substance: OXAZEPAM
     Indication: PRODUCT USED FOR UNKNOWN INDICATION
     Dosage: 4 TO 5 TIMES A DAY
     Route: 048
  2. BUPRENORPHINE. [Suspect]
     Active Substance: BUPRENORPHINE
     Indication: PRODUCT USED FOR UNKNOWN INDICATION
     Dosage: 24 MG, UNK
     Route: 045
     Dates: start: 2014, end: 2015
  3. NICOTIANA TABACUM [Suspect]
     Active Substance: TOBACCO LEAF
     Indication: TOBACCO USER
     Dosage: 30G IN 2 DAYS SINCE 1980
     Route: 055
     Dates: start: 1980

REACTIONS (6)
  - Prescribed overdose [Recovered/Resolved]
  - Drug dependence [Recovering/Resolving]
  - Intentional product use issue [Recovered/Resolved]
  - Alcohol abuse [Recovering/Resolving]
  - Intentional product misuse [Recovered/Resolved]
  - Drug abuse [Recovering/Resolving]

NARRATIVE: CASE EVENT DATE: 1981
